FAERS Safety Report 4887263-3 (Version None)
Quarter: 2005Q4

REPORT INFORMATION
  Report Type: 
  Country: None (occurrence: None)
  Receive Date: 20051221
  Receipt Date: 20051018
  Transmission Date: 20060501
  Serious: No
  Sender: FDA-Public Use
  Company Number: US-YAMANOUCHI-YPA20050540

PATIENT
  Age: 80 Year
  Sex: Male

DRUGS (1)
  1. VESICARE [Suspect]
     Indication: POLLAKIURIA
     Dosage: 5 MG QD
     Dates: start: 20050601, end: 20050801

REACTIONS (4)
  - DRY MOUTH [None]
  - DRY THROAT [None]
  - DYSPNOEA [None]
  - NASAL DRYNESS [None]
